FAERS Safety Report 14245628 (Version 2)
Quarter: 2018Q1

REPORT INFORMATION
  Report Type: Report from Study
  Country: FR (occurrence: FR)
  Receive Date: 20171203
  Receipt Date: 20180226
  Transmission Date: 20180508
  Serious: Yes (Hospitalization)
  Sender: FDA-Public Use
  Company Number: FR-AMGEN-FRANI2017179244

PATIENT
  Age: 38 Year
  Sex: Female
  Weight: 65 kg

DRUGS (18)
  1. STELARA [Concomitant]
     Active Substance: USTEKINUMAB
     Dosage: 45 MG, CYCLIC: EVERY 8 WEEKS
     Route: 058
     Dates: start: 201501, end: 20160322
  2. STELARA [Concomitant]
     Active Substance: USTEKINUMAB
     Dosage: 90 MG, CYCLIC: EVERY 8WEEKS
     Route: 058
     Dates: start: 20171020
  3. KETOPROFEN. [Concomitant]
     Active Substance: KETOPROFEN
     Dosage: UNK
  4. STELARA [Concomitant]
     Active Substance: USTEKINUMAB
     Dosage: 90 MG, CYCLIC: EVERY 8 WEEKS
     Route: 058
     Dates: start: 20160322, end: 201609
  5. KLIPAL CODEINE [Concomitant]
     Active Substance: ACETAMINOPHEN\CODEINE PHOSPHATE
     Dosage: UNK
  6. ETANERCEPT [Suspect]
     Active Substance: ETANERCEPT
     Indication: PSORIASIS
     Dosage: 50 MG, 2 TIMES/WK
     Route: 058
     Dates: start: 20170707, end: 20171020
  7. METHOTREXATE SODIUM. [Suspect]
     Active Substance: METHOTREXATE SODIUM
     Dosage: 15 MG, WEEKLY
     Route: 048
     Dates: start: 20150630, end: 20150918
  8. GLYCEROL\PARAFFIN [Concomitant]
     Active Substance: GLYCERIN\PARAFFIN
     Dosage: UNK
     Route: 065
     Dates: start: 20130211
  9. METHOTREXATE SODIUM. [Suspect]
     Active Substance: METHOTREXATE SODIUM
     Indication: PSORIASIS
     Dosage: 25 MG, WEEKLY
     Route: 058
     Dates: start: 2011, end: 201203
  10. STELARA [Concomitant]
     Active Substance: USTEKINUMAB
     Dosage: 90 MG, CYCLIC: EVERY 8 WEEKS
     Route: 058
     Dates: start: 20140107, end: 201501
  11. KETOPROFEN. [Concomitant]
     Active Substance: KETOPROFEN
     Dosage: UNK
  12. ACECLOFENAC [Concomitant]
     Active Substance: ACECLOFENAC
     Dosage: UNK
  13. GLYCEROL\PARAFFIN [Concomitant]
     Active Substance: GLYCERIN\PARAFFIN
     Dosage: UNK
     Dates: start: 20130211
  14. STELARA [Concomitant]
     Active Substance: USTEKINUMAB
     Indication: PSORIASIS
     Dosage: 45 MG, EVERY 4 WEEKS
     Route: 058
     Dates: start: 20130211, end: 20130312
  15. STELARA [Concomitant]
     Active Substance: USTEKINUMAB
     Dosage: 45 MG, CYCLIC: EVERY 8 WEEKS
     Route: 058
     Dates: start: 20130620, end: 20140107
  16. STELARA [Concomitant]
     Active Substance: USTEKINUMAB
     Dosage: 45 MG, CYCLIC: EVERY 12 WEEKS
     Route: 058
     Dates: start: 20130312, end: 20130620
  17. DAIVOBET [Concomitant]
     Active Substance: BETAMETHASONE DIPROPIONATE\CALCIPOTRIENE
     Dosage: UNK
  18. ACECLOFENAC [Concomitant]
     Active Substance: ACECLOFENAC
     Dosage: UNK

REACTIONS (3)
  - Psoriasis [Not Recovered/Not Resolved]
  - Headache [Recovered/Resolved]
  - Drug ineffective [Not Recovered/Not Resolved]

NARRATIVE: CASE EVENT DATE: 20170823
